FAERS Safety Report 12213310 (Version 2)
Quarter: 2016Q1

REPORT INFORMATION
  Report Type: Report from Study
  Country: JM (occurrence: JM)
  Receive Date: 20160328
  Receipt Date: 20160329
  Transmission Date: 20160526
  Serious: Yes (Death, Hospitalization, Other)
  Sender: FDA-Public Use
  Company Number: PHHY2016JM038999

PATIENT
  Age: 60 Year
  Sex: Male
  Weight: 74 kg

DRUGS (6)
  1. GLIVEC [Suspect]
     Active Substance: IMATINIB MESYLATE
     Indication: CHRONIC MYELOID LEUKAEMIA
     Dosage: 600 MG, QD
     Route: 048
     Dates: start: 201408, end: 201512
  2. ALLOPURINOL. [Concomitant]
     Active Substance: ALLOPURINOL
     Indication: PRODUCT USED FOR UNKNOWN INDICATION
     Dosage: 300 MG, QD
     Route: 048
     Dates: start: 2014
  3. VITAMIN B12 [Concomitant]
     Active Substance: CYANOCOBALAMIN
     Indication: PRODUCT USED FOR UNKNOWN INDICATION
     Route: 065
  4. FOLIC [Concomitant]
     Active Substance: FOLIC ACID
     Indication: PRODUCT USED FOR UNKNOWN INDICATION
     Dosage: 5 MG, QD
     Route: 048
     Dates: start: 2014
  5. FERROUS SULFATE [Concomitant]
     Active Substance: FERROUS SULFATE\FERROUS SULFATE, DRIED
     Indication: PRODUCT USED FOR UNKNOWN INDICATION
     Dosage: 325 MG, QD
     Route: 048
     Dates: start: 2014
  6. IRON [Concomitant]
     Active Substance: IRON
     Indication: PRODUCT USED FOR UNKNOWN INDICATION
     Route: 065

REACTIONS (7)
  - Neutrophil percentage increased [Unknown]
  - Renal failure [Fatal]
  - Anaemia [Unknown]
  - White blood cell count increased [Unknown]
  - Platelet count decreased [Unknown]
  - Diarrhoea [Unknown]
  - Vomiting [Unknown]

NARRATIVE: CASE EVENT DATE: 20151208
